FAERS Safety Report 8810694 (Version 1)
Quarter: 2012Q4

REPORT INFORMATION
  Report Type: Spontaneous
  Country: US (occurrence: None)
  Receive Date: 20120924
  Receipt Date: 20120924
  Transmission Date: 20130627
  Serious: Yes (Hospitalization)
  Sender: FDA-Public Use
  Company Number: None

PATIENT
  Age: 36 Year
  Sex: Female
  Weight: 84.1 kg

DRUGS (11)
  1. ZOLEDRONIC ACID [Concomitant]
     Indication: METASTATIC BREAST CANCER
     Dosage: 3 mg 3-4 weeks IVPB
     Dates: start: 20100419, end: 20120912
  2. BIOTIN [Concomitant]
  3. AROMASIN [Concomitant]
  4. LORTAB [Concomitant]
  5. IRON-VITAMIN C [Concomitant]
  6. SYNTHROID [Concomitant]
  7. ALEVE [Concomitant]
  8. MULTIVITAMIN [Concomitant]
  9. ZOFRAN [Concomitant]
  10. ZOLOFT [Concomitant]
  11. ZOMETA [Concomitant]

REACTIONS (7)
  - Dizziness [None]
  - Vision blurred [None]
  - Anaemia [None]
  - Thrombocytopenia [None]
  - Hypercalcaemia [None]
  - Renal failure acute [None]
  - Sepsis [None]
